FAERS Safety Report 6833936-2 (Version None)
Quarter: 2010Q3

REPORT INFORMATION
  Report Type: 
  Country: None (occurrence: None)
  Receive Date: 20100712
  Receipt Date: 20070405
  Transmission Date: 20110219
  Serious: No
  Sender: FDA-Public Use
  Company Number: US-PFIZER INC-2007028551

PATIENT
  Sex: Female
  Weight: 90.72 kg

DRUGS (7)
  1. CHANTIX [Suspect]
     Indication: SMOKING CESSATION THERAPY
     Dates: start: 20070101
  2. CYMBALTA [Concomitant]
  3. PRILOSEC [Concomitant]
  4. AVANDIA [Concomitant]
  5. TOPROL-XL [Concomitant]
  6. LASIX [Concomitant]
  7. NICOTINE [Concomitant]
     Route: 062

REACTIONS (1)
  - NAUSEA [None]
